FAERS Safety Report 6492642-7 (Version None)
Quarter: 2009Q4

REPORT INFORMATION
  Report Type: 
  Country: None (occurrence: None)
  Receive Date: 20091214
  Receipt Date: 20091203
  Transmission Date: 20100525
  Serious: Yes (Hospitalization)
  Sender: FDA-Public Use
  Company Number: JP-ASTRAZENECA-2009SE30186

PATIENT
  Age: 26038 Day
  Sex: Female
  Weight: 47 kg

DRUGS (10)
  1. IRESSA [Suspect]
     Indication: LUNG ADENOCARCINOMA
     Route: 048
     Dates: start: 20091118, end: 20091127
  2. IRESSA [Suspect]
     Route: 048
     Dates: start: 20091201
  3. RINDERON [Concomitant]
     Indication: POSTOPERATIVE CARE
     Route: 048
     Dates: start: 20091117
  4. NORVASC [Concomitant]
     Indication: HYPERTENSION
     Route: 048
  5. TANATRIL [Concomitant]
     Indication: HYPERTENSION
     Route: 048
  6. THYRADIN S [Concomitant]
     Indication: HYPOTHYROIDISM
     Route: 048
  7. LIVALO [Concomitant]
     Indication: HYPERLIPIDAEMIA
     Route: 048
  8. PURSENNID [Concomitant]
     Indication: CONSTIPATION
     Route: 048
  9. FERROMIA [Concomitant]
     Indication: ANAEMIA
     Route: 048
  10. MAGMITT [Concomitant]
     Indication: CONSTIPATION
     Route: 048

REACTIONS (2)
  - HAEMATURIA [None]
  - POLLAKIURIA [None]
